FAERS Safety Report 5641357-3 (Version None)
Quarter: 2008Q1

REPORT INFORMATION
  Report Type: 
  Country: None (occurrence: None)
  Receive Date: 20080227
  Receipt Date: 20070927
  Transmission Date: 20080703
  Serious: No
  Sender: FDA-Public Use
  Company Number: A0659539A

PATIENT
  Age: 46 Year
  Sex: Male

DRUGS (1)
  1. NICORETTE (MINT) [Suspect]
     Indication: DRUG USE FOR UNKNOWN INDICATION
     Dosage: 6MG PER DAY
     Route: 002
     Dates: start: 20070501

REACTIONS (3)
  - DIARRHOEA [None]
  - FLATULENCE [None]
  - GASTRIC DISORDER [None]
